FAERS Safety Report 23655856 (Version 1)
Quarter: 2024Q1

REPORT INFORMATION
  Report Type: Spontaneous
  Country: US (occurrence: US)
  Receive Date: 20240321
  Receipt Date: 20240321
  Transmission Date: 20240410
  Serious: No
  Sender: FDA-Public Use
  Company Number: US-AJANTA-2024AJA00004

PATIENT
  Age: 50 Year
  Sex: Male
  Weight: 210 kg

DRUGS (2)
  1. RISPERIDONE [Suspect]
     Active Substance: RISPERIDONE
     Indication: Psychotic disorder
     Dosage: 10 TABLETS
     Route: 048
     Dates: start: 20230819, end: 2023
  2. RISPERIDONE [Suspect]
     Active Substance: RISPERIDONE
     Dosage: 3 TABLETS
     Route: 048
     Dates: start: 20231221, end: 20231223

REACTIONS (2)
  - Product taste abnormal [Unknown]
  - Product odour abnormal [Unknown]

NARRATIVE: CASE EVENT DATE: 20230101
